FAERS Safety Report 7407654-6 (Version None)
Quarter: 2011Q2

REPORT INFORMATION
  Report Type: 
  Country: None (occurrence: None)
  Receive Date: 20110404
  Receipt Date: 20110323
  Transmission Date: 20111010
  Serious: Yes (Hospitalization, Other)
  Sender: FDA-Public Use
  Company Number: WAES 1103POL00004

PATIENT
  Age: 73 Year
  Sex: Male

DRUGS (8)
  1. FUROSEMIDE [Concomitant]
  2. IPRATROPIUM BROMIDE [Concomitant]
  3. STUDY DRUG (UNSPECIFIED) [Suspect]
     Indication: PARKINSON'S DISEASE
     Dosage: 195 MG PO
     Route: 048
     Dates: start: 20100712, end: 20101125
  4. CIPROFLOXACIN [Concomitant]
  5. CARBIDOPA/LEVODOPA [Suspect]
     Indication: PARKINSON'S DISEASE
     Dosage: 25/100 MG PO
     Route: 048
     Dates: start: 20100802, end: 20101125
  6. CLARITHROMYCIN [Concomitant]
  7. METOPROLOL TARTRATE [Concomitant]
  8. THEOPHYLLINE [Concomitant]

REACTIONS (7)
  - ATRIAL FIBRILLATION [None]
  - AGITATION [None]
  - MYOCARDIAL ISCHAEMIA [None]
  - RESPIRATORY FAILURE [None]
  - NERVOUS SYSTEM DISORDER [None]
  - RASH [None]
  - PNEUMONIA [None]
